FAERS Safety Report 4866009-9 (Version None)
Quarter: 2005Q4

REPORT INFORMATION
  Report Type: 
  Country: None (occurrence: None)
  Receive Date: 20051221
  Receipt Date: 20051206
  Transmission Date: 20060501
  Serious: Yes (Hospitalization, Other)
  Sender: FDA-Public Use
  Company Number: 200512413BWH

PATIENT
  Age: 44 Year
  Sex: Male
  Weight: 95.2554 kg

DRUGS (2)
  1. AVELOX [Suspect]
     Indication: BRONCHITIS
     Dosage: 400 MG, ONCE, ORAL
     Route: 048
     Dates: start: 20051028, end: 20051030
  2. AVELOX [Suspect]
     Indication: CONDITION AGGRAVATED
     Dosage: 400 MG, ONCE, ORAL
     Route: 048
     Dates: start: 20051028, end: 20051030

REACTIONS (1)
  - CARDIAC DISORDER [None]
